FAERS Safety Report 25466951 (Version 4)
Quarter: 2025Q3

REPORT INFORMATION
  Report Type: Report from Study
  Country: CA (occurrence: CA)
  Receive Date: 20250623
  Receipt Date: 20250923
  Transmission Date: 20251020
  Serious: Yes (Death, Hospitalization, Other)
  Sender: GLAXOSMITHKLINE
  Company Number: CA-GSK-CA2025076546

PATIENT
  Age: 75 Year
  Sex: Male

DRUGS (3)
  1. MOMELOTINIB [Suspect]
     Active Substance: MOMELOTINIB
     Indication: Myelofibrosis
     Dosage: 200 MG, QD
  2. MOMELOTINIB [Suspect]
     Active Substance: MOMELOTINIB
  3. MOMELOTINIB [Suspect]
     Active Substance: MOMELOTINIB
     Dosage: 150 MG, QD

REACTIONS (3)
  - Death [Fatal]
  - Hospitalisation [Unknown]
  - Pneumonia [Recovered/Resolved]

NARRATIVE: CASE EVENT DATE: 20250523
